FAERS Safety Report 25094233 (Version 1)
Quarter: 2025Q1

REPORT INFORMATION
  Report Type: Spontaneous
  Country: CN (occurrence: CN)
  Receive Date: 20250319
  Receipt Date: 20250319
  Transmission Date: 20250409
  Serious: Yes (Other)
  Sender: ACCORD
  Company Number: CN-MLMSERVICE-20250228-PI433003-00152-1

PATIENT
  Age: 7 Year
  Sex: Male

DRUGS (10)
  1. FLUOROURACIL [Suspect]
     Active Substance: FLUOROURACIL
     Indication: Pancreatic carcinoma stage II
     Dosage: CONTINUED FOR 46 H; RECEIVED 6 CYCLES
     Dates: start: 20230118, end: 20230613
  2. IRINOTECAN [Suspect]
     Active Substance: IRINOTECAN
     Indication: Pancreatic carcinoma stage II
     Dates: start: 20230118, end: 20230613
  3. OXALIPLATIN [Suspect]
     Active Substance: OXALIPLATIN
     Indication: Acinar cell carcinoma of pancreas
     Dates: start: 20230118, end: 20230613
  4. PACLITAXEL [Suspect]
     Active Substance: PACLITAXEL
     Indication: Pancreatic carcinoma stage II
     Dates: start: 2023
  5. LEUCOVORIN [Suspect]
     Active Substance: LEUCOVORIN\LEUCOVORIN CALCIUM
     Indication: Pancreatic carcinoma stage II
     Dosage: ON DAY 1; RECEIVED 6 CYCLES
     Dates: start: 20230118, end: 20230613
  6. LEUCOVORIN [Suspect]
     Active Substance: LEUCOVORIN\LEUCOVORIN CALCIUM
     Indication: Acinar cell carcinoma of pancreas
     Dosage: ON DAY 1; RECEIVED 6 CYCLES
     Dates: start: 20230118, end: 20230613
  7. FLUOROURACIL [Suspect]
     Active Substance: FLUOROURACIL
     Indication: Pancreatic carcinoma stage II
     Dosage: CONTINUED FOR 46 H; RECEIVED 6 CYCLES
     Dates: start: 20230118, end: 20230613
  8. PACLITAXEL [Suspect]
     Active Substance: PACLITAXEL
     Indication: Acinar cell carcinoma of pancreas
     Dates: start: 2023
  9. OXALIPLATIN [Suspect]
     Active Substance: OXALIPLATIN
     Indication: Pancreatic carcinoma stage II
     Dates: start: 20230118, end: 20230613
  10. IRINOTECAN [Suspect]
     Active Substance: IRINOTECAN
     Indication: Acinar cell carcinoma of pancreas
     Dates: start: 20230118, end: 20230613

REACTIONS (3)
  - Myelosuppression [Unknown]
  - Diarrhoea [Unknown]
  - White blood cell count decreased [Recovered/Resolved]

NARRATIVE: CASE EVENT DATE: 20230101
